FAERS Safety Report 10242710 (Version 1)
Quarter: 2014Q2

REPORT INFORMATION
  Report Type: Spontaneous
  Country: CH (occurrence: CH)
  Receive Date: 20140617
  Receipt Date: 20140617
  Transmission Date: 20141212
  Serious: Yes (Life-Threatening, Other)
  Sender: FDA-Public Use
  Company Number: CH-RB-068710-14

PATIENT
  Age: 63 Year
  Sex: Male

DRUGS (6)
  1. TEMGESIC TABLET [Suspect]
     Indication: INCISION SITE PAIN
     Route: 060
     Dates: start: 20140427, end: 20140428
  2. MOTILIUM [Concomitant]
     Indication: PRODUCT USED FOR UNKNOWN INDICATION
     Route: 048
     Dates: start: 20140428, end: 20140505
  3. ZOFRAN [Concomitant]
     Indication: PRODUCT USED FOR UNKNOWN INDICATION
     Route: 048
     Dates: start: 20140427, end: 20140505
  4. NEXIUM [Concomitant]
     Indication: PRODUCT USED FOR UNKNOWN INDICATION
     Route: 048
     Dates: start: 20140424
  5. PERFALGAN [Concomitant]
     Indication: PRODUCT USED FOR UNKNOWN INDICATION
     Route: 041
     Dates: start: 20140428, end: 20140430
  6. CLEXANE [Concomitant]
     Indication: THROMBOSIS MESENTERIC VESSEL
     Route: 058
     Dates: start: 20140425

REACTIONS (3)
  - Respiratory arrest [Recovered/Resolved]
  - Apnoea [Recovered/Resolved]
  - Somnolence [Recovered/Resolved]
